FAERS Safety Report 11158794 (Version 2)
Quarter: 2015Q2

REPORT INFORMATION
  Report Type: Spontaneous
  Country: US (occurrence: US)
  Receive Date: 20150603
  Receipt Date: 20150612
  Transmission Date: 20150821
  Serious: Yes (Other)
  Sender: FDA-Public Use
  Company Number: US-PFIZER INC-2015184029

PATIENT
  Age: 83 Year
  Sex: Male
  Weight: 86 kg

DRUGS (5)
  1. ALPRAZOLAM. [Suspect]
     Active Substance: ALPRAZOLAM
     Dosage: 1 DF, DAILY
  2. ALPRAZOLAM. [Suspect]
     Active Substance: ALPRAZOLAM
     Dosage: 1 DF, 2X/DAY
  3. ALPRAZOLAM. [Suspect]
     Active Substance: ALPRAZOLAM
     Indication: RESTLESSNESS
     Dosage: 1.5 DF, 1X/DAY (EVERY BED TIME WITH NO BREAKS)
  4. OXYCODONE [Suspect]
     Active Substance: OXYCODONE
     Indication: PAIN
     Dosage: UNK, 3X/DAY
     Dates: start: 1991
  5. ALPRAZOLAM. [Suspect]
     Active Substance: ALPRAZOLAM
     Indication: PAIN
     Dosage: 1 DF, 3X/DAY

REACTIONS (11)
  - Nausea [Recovered/Resolved]
  - Hypoaesthesia [Unknown]
  - Pyrexia [Unknown]
  - Erythema [Unknown]
  - Drug withdrawal syndrome [Unknown]
  - Pain [Unknown]
  - Product use issue [Unknown]
  - Vomiting [Recovered/Resolved]
  - Cough [Unknown]
  - Urinary tract obstruction [Unknown]
  - Chills [Unknown]

NARRATIVE: CASE EVENT DATE: 20150522
